FAERS Safety Report 20033844 (Version 1)
Quarter: 2021Q4

REPORT INFORMATION
  Report Type: Spontaneous
  Country: US (occurrence: US)
  Receive Date: 20211104
  Receipt Date: 20211104
  Transmission Date: 20220304
  Serious: No
  Sender: FDA-Public Use
  Company Number: US-PFIZER INC-2018472243

PATIENT
  Age: 69 Year
  Sex: Female
  Weight: 87.09 kg

DRUGS (4)
  1. INSPRA [Suspect]
     Active Substance: EPLERENONE
     Indication: Hypokalaemia
     Dosage: 1 DF, 2X/DAY
     Route: 048
  2. INSPRA [Suspect]
     Active Substance: EPLERENONE
     Indication: Hypertension
     Dosage: 0.5 DF, 2X/DAY
     Route: 048
  3. INSPRA [Suspect]
     Active Substance: EPLERENONE
     Indication: Hyperaldosteronism
     Dosage: 1 DF, 1X/DAY
     Route: 048
  4. INSPRA [Suspect]
     Active Substance: EPLERENONE
     Dosage: 0.5 DF, 2X/DAY
     Route: 048

REACTIONS (1)
  - Intentional product use issue [Unknown]
